FAERS Safety Report 25336931 (Version 3)
Quarter: 2025Q4

REPORT INFORMATION
  Report Type: Spontaneous
  Country: GB (occurrence: GB)
  Receive Date: 20250520
  Receipt Date: 20251010
  Transmission Date: 20260117
  Serious: Yes (Other)
  Sender: REGENERON
  Company Number: GB-REGENERON PHARMACEUTICALS, INC.-2025-080920

PATIENT
  Age: 74 Year

DRUGS (2)
  1. LIBTAYO [Suspect]
     Active Substance: CEMIPLIMAB-RWLC
     Indication: Squamous cell carcinoma of skin
     Dosage: 350 MG, Q3W
     Dates: start: 202405
  2. LIBTAYO [Suspect]
     Active Substance: CEMIPLIMAB-RWLC
     Dosage: 350 MG, Q3W

REACTIONS (11)
  - Necrotic lymphadenopathy [Unknown]
  - Skin lesion [Unknown]
  - Ulcer [Unknown]
  - Skin reaction [Unknown]
  - Therapy partial responder [Unknown]
  - Disease progression [Unknown]
  - Fatigue [Unknown]
  - Swelling face [Unknown]
  - Product dose omission issue [Unknown]
  - Fatigue [Unknown]
  - Skin reaction [Unknown]

NARRATIVE: CASE EVENT DATE: 20240801
